FAERS Safety Report 6214617-5 (Version None)
Quarter: 2009Q2

REPORT INFORMATION
  Report Type: 
  Country: None (occurrence: None)
  Receive Date: 20090604
  Receipt Date: 20090522
  Transmission Date: 20091009
  Serious: Yes (Other)
  Sender: FDA-Public Use
  Company Number: AR-PFIZER INC-2009219576

PATIENT
  Age: 42 Year

DRUGS (1)
  1. CHAMPIX [Suspect]
     Dosage: 2 MG, UNK
     Route: 048

REACTIONS (2)
  - FLUID RETENTION [None]
  - PAIN IN EXTREMITY [None]
